FAERS Safety Report 5742830-X (Version None)
Quarter: 2008Q2

REPORT INFORMATION
  Report Type: 
  Country: None (occurrence: None)
  Receive Date: 20080515
  Receipt Date: 20080515
  Transmission Date: 20081010
  Serious: Yes (Hospitalization)
  Sender: FDA-Public Use
  Company Number: None

PATIENT
  Age: 82 Year
  Sex: Male
  Weight: 104.33 kg

DRUGS (2)
  1. FENTANYL-100 [Suspect]
     Indication: ANAESTHESIA
     Dosage: 50 MCG ONCE IV
     Route: 042
     Dates: start: 20080305, end: 20080305
  2. MIDAZOLAM HCL [Suspect]
     Indication: ANAESTHESIA
     Dosage: 1 MG ONCE IV
     Route: 042
     Dates: start: 20080305, end: 20080305

REACTIONS (2)
  - BRADYCARDIA [None]
  - SYNCOPE [None]
